FAERS Safety Report 14789240 (Version 2)
Quarter: 2018Q3

REPORT INFORMATION
  Report Type: Spontaneous
  Country: DE (occurrence: DE)
  Receive Date: 20180423
  Receipt Date: 20180912
  Transmission Date: 20181010
  Serious: Yes (Other)
  Sender: FDA-Public Use
  Company Number: PHHY2018DE066728

PATIENT
  Age: 19 Year
  Sex: Male

DRUGS (8)
  1. CYCLOPHOSPHAMIDE. [Concomitant]
     Active Substance: CYCLOPHOSPHAMIDE
     Indication: ATYPICAL TERATOID/RHABDOID TUMOUR OF CNS
  2. CYCLOPHOSPHAMIDE. [Concomitant]
     Active Substance: CYCLOPHOSPHAMIDE
     Route: 065
  3. IFOSFAMIDE. [Suspect]
     Active Substance: IFOSFAMIDE
     Indication: ATYPICAL TERATOID/RHABDOID TUMOUR OF CNS
     Dosage: UNK UNK, CYCLIC
     Route: 065
     Dates: start: 2014
  4. DOXORUBICIN [Concomitant]
     Active Substance: DOXORUBICIN
     Indication: ATYPICAL TERATOID/RHABDOID TUMOUR OF CNS
  5. ETOPOSIDE. [Suspect]
     Active Substance: ETOPOSIDE
     Indication: ATYPICAL TERATOID/RHABDOID TUMOUR OF CNS
     Dosage: UNK UNK, CYCLIC
     Route: 065
     Dates: start: 2014
  6. CARBOPLATIN. [Suspect]
     Active Substance: CARBOPLATIN
     Indication: ATYPICAL TERATOID/RHABDOID TUMOUR OF CNS
     Dosage: UNK UNK, CYCLIC
     Route: 065
     Dates: start: 2014
  7. VINCRISTIN [Concomitant]
     Active Substance: VINCRISTINE
     Indication: ATYPICAL TERATOID/RHABDOID TUMOUR OF CNS
     Route: 065
  8. DOXORUBICIN [Concomitant]
     Active Substance: DOXORUBICIN
     Dosage: UNK UNK, CYCLIC
     Route: 065
     Dates: start: 2014

REACTIONS (4)
  - Anaemia [Recovered/Resolved]
  - Thrombocytopenia [Recovered/Resolved]
  - Product use in unapproved indication [Unknown]
  - Febrile neutropenia [Recovered/Resolved]
